FAERS Safety Report 15288413 (Version 2)
Quarter: 2018Q3

REPORT INFORMATION
  Report Type: Spontaneous
  Country: JP (occurrence: JP)
  Receive Date: 20180817
  Receipt Date: 20180918
  Transmission Date: 20181010
  Serious: Yes (Death)
  Sender: FDA-Public Use
  Company Number: JP-BAYER-2018-149974

PATIENT
  Age: 75 Year
  Sex: Male
  Weight: 45 kg

DRUGS (7)
  1. ADRENALINE [Concomitant]
     Active Substance: EPINEPHRINE
     Dosage: DAILY DOSE 1 MG
     Route: 042
  2. CARVEDILOL. [Concomitant]
     Active Substance: CARVEDILOL
     Indication: PERCUTANEOUS CORONARY INTERVENTION
     Dosage: DAILY DOSE 20 MG
     Route: 048
  3. ATROPINE. [Concomitant]
     Active Substance: ATROPINE
     Indication: SINUS BRADYCARDIA
     Dosage: DAILY DOSE .5 MG
     Route: 042
  4. ATROPINE. [Concomitant]
     Active Substance: ATROPINE
     Indication: ATRIOVENTRICULAR BLOCK
  5. NORADRENALINE [Concomitant]
     Active Substance: NOREPINEPHRINE
     Dosage: 0.1?G/KG/MIN
  6. BAYASPIRIN 100 MG [Suspect]
     Active Substance: ASPIRIN
     Indication: CORONARY ANGIOPLASTY
     Dosage: DAILY DOSE 100 MG
     Route: 048
  7. ROPIVACAINE [Concomitant]
     Active Substance: ROPIVACAINE
     Dosage: DAILY DOSE 8 ML

REACTIONS (3)
  - Large intestine perforation [Fatal]
  - Renal impairment [Fatal]
  - Anaemia [Fatal]
